FAERS Safety Report 4759221-0 (Version None)
Quarter: 2005Q3

REPORT INFORMATION
  Report Type: 
  Country: None (occurrence: None)
  Receive Date: 20050831
  Receipt Date: 20050817
  Transmission Date: 20060218
  Serious: Yes (Hospitalization)
  Sender: FDA-Public Use
  Company Number: 2005-DE-03223GD

PATIENT
  Age: 2 Day

DRUGS (3)
  1. OXAZEPAM [Suspect]
     Dosage: NR (NR), IU
     Route: 015
  2. ALPRAZOLAM [Suspect]
     Dosage: NR (NR), IU
     Route: 015
  3. SSRI (SSRI) [Suspect]
     Dosage: NR (NR); IU
     Route: 015

REACTIONS (5)
  - AGITATION NEONATAL [None]
  - DRUG EXPOSURE DURING PREGNANCY [None]
  - IRRITABILITY [None]
  - NEONATAL DISORDER [None]
  - SEROTONIN SYNDROME [None]
